FAERS Safety Report 9542139 (Version 4)
Quarter: 2013Q4

REPORT INFORMATION
  Report Type: Spontaneous
  Country: BR (occurrence: BR)
  Receive Date: 20130923
  Receipt Date: 20131219
  Transmission Date: 20140711
  Serious: Yes (Hospitalization)
  Sender: FDA-Public Use
  Company Number: BR-ASTRAZENECA-2013SE70182

PATIENT
  Sex: Male
  Weight: 80.3 kg

DRUGS (11)
  1. NEXIUM [Suspect]
     Indication: GASTRIC DISORDER
     Route: 048
  2. LISINOPRIL [Suspect]
     Indication: HYPERTENSION
     Route: 048
  3. CRESTOR [Suspect]
     Indication: BLOOD CHOLESTEROL ABNORMAL
     Route: 048
     Dates: end: 201308
  4. CRESTOR [Suspect]
     Indication: BLOOD CHOLESTEROL ABNORMAL
     Route: 048
  5. BRILINTA [Suspect]
     Route: 048
     Dates: start: 201307
  6. ASPIRINA PREVENT [Concomitant]
     Indication: ANTICOAGULANT THERAPY
  7. NIMISULIDE [Concomitant]
  8. BIOBACILLUS [Concomitant]
     Indication: PROPHYLAXIS
  9. OMEGA (PHYTOTHERAPEUTIC DRUG) [Concomitant]
  10. VITAMIN D [Concomitant]
     Indication: VITAMIN SUPPLEMENTATION
  11. ALOE VERA [Concomitant]
     Indication: DYSPEPSIA

REACTIONS (12)
  - Heart rate decreased [Recovered/Resolved]
  - Thrombosis [Recovered/Resolved]
  - Diverticulitis [Recovered/Resolved]
  - Renal colic [Recovered/Resolved]
  - Blood urine present [Recovered/Resolved]
  - Abdominal pain [Recovered/Resolved]
  - Myalgia [Unknown]
  - Subcutaneous haematoma [Not Recovered/Not Resolved]
  - Neck pain [Not Recovered/Not Resolved]
  - Headache [Not Recovered/Not Resolved]
  - Cheilitis [Not Recovered/Not Resolved]
  - Rash [Not Recovered/Not Resolved]
